FAERS Safety Report 5590234-5 (Version None)
Quarter: 2007Q4

REPORT INFORMATION
  Report Type: 
  Country: None (occurrence: None)
  Receive Date: 20071217
  Receipt Date: 20070911
  Transmission Date: 20080405
  Serious: No
  Sender: FDA-Public Use
  Company Number: BDI-010177

PATIENT
  Age: 48 Year
  Sex: Male
  Weight: 114 kg

DRUGS (2)
  1. MULTIHANCE [Suspect]
     Indication: COGNITIVE DISORDER
     Dosage: 15 ML ONCE IV
     Route: 042
     Dates: start: 20070910, end: 20070910
  2. MULTIHANCE [Suspect]
     Indication: NUCLEAR MAGNETIC RESONANCE IMAGING
     Dosage: 15 ML ONCE IV
     Route: 042
     Dates: start: 20070910, end: 20070910

REACTIONS (1)
  - VOMITING [None]
